FAERS Safety Report 6544316-1 (Version None)
Quarter: 2010Q1

REPORT INFORMATION
  Report Type: 
  Country: None (occurrence: None)
  Receive Date: 20100120
  Receipt Date: 20100120
  Transmission Date: 20100710
  Serious: Yes (Other)
  Sender: FDA-Public Use
  Company Number: None

PATIENT
  Age: 50 Year
  Sex: Female
  Weight: 56.6996 kg

DRUGS (1)
  1. ACTIVELLA [Suspect]
     Indication: MENOPAUSE
     Dosage: 1 TABLET PER DAY PO
     Route: 048
     Dates: start: 20090615, end: 20100114

REACTIONS (1)
  - ALOPECIA [None]
